FAERS Safety Report 9239333 (Version 1)
Quarter: 2013Q2

REPORT INFORMATION
  Report Type: Spontaneous
  Country: US (occurrence: US)
  Receive Date: 20130418
  Receipt Date: 20130418
  Transmission Date: 20140414
  Serious: Yes (Hospitalization)
  Sender: FDA-Public Use
  Company Number: US-SANOFI-AVENTIS-2012SA048908

PATIENT
  Age: 78 Year
  Sex: Male

DRUGS (4)
  1. LOVENOX [Suspect]
     Indication: ATRIAL FIBRILLATION
  2. XARELTO [Suspect]
     Indication: ATRIAL FIBRILLATION
     Route: 048
  3. XARELTO [Suspect]
     Indication: CEREBROVASCULAR ACCIDENT PROPHYLAXIS
     Route: 048
  4. ACETYLSALICYLIC ACID [Suspect]
     Indication: ILL-DEFINED DISORDER

REACTIONS (1)
  - Haematoma [Unknown]
